FAERS Safety Report 10429316 (Version 1)
Quarter: 2014Q3

REPORT INFORMATION
  Report Type: Spontaneous
  Country: US (occurrence: None)
  Receive Date: 20140902
  Receipt Date: 20140902
  Transmission Date: 20150326
  Serious: Yes (Hospitalization)
  Sender: FDA-Public Use
  Company Number: None

PATIENT
  Age: 72 Year
  Sex: Male

DRUGS (11)
  1. NEPHROCAPS [Concomitant]
     Active Substance: ASCORBIC ACID\BIOTIN\CYANOCOBALAMIN\FOLIC ACID\NIACIN\PANTOTHENIC ACID\PYRIDOXINE\RIBOFLAVIN\THIAMINE
  2. ASPIRIN. [Concomitant]
     Active Substance: ASPIRIN
  3. LISINOPRIL. [Concomitant]
     Active Substance: LISINOPRIL
  4. SEVELAMER [Concomitant]
     Active Substance: SEVELAMER
  5. GLIPIZIDE. [Suspect]
     Active Substance: GLIPIZIDE
     Indication: HYPERGLYCAEMIA
     Route: 048
     Dates: end: 20140719
  6. ATORVASTATIN [Concomitant]
     Active Substance: ATORVASTATIN
  7. CARVEDILOL. [Concomitant]
     Active Substance: CARVEDILOL
  8. ALLOPURINOL. [Concomitant]
     Active Substance: ALLOPURINOL
  9. AMIODARONE [Concomitant]
     Active Substance: AMIODARONE
  10. COENZYME Q10 [Concomitant]
     Active Substance: UBIDECARENONE
  11. DOCUSATE [Concomitant]
     Active Substance: DOCUSATE

REACTIONS (3)
  - Blood glucose decreased [None]
  - Dysarthria [None]
  - Lethargy [None]

NARRATIVE: CASE EVENT DATE: 20140719
